FAERS Safety Report 8165765-4 (Version None)
Quarter: 2012Q1

REPORT INFORMATION
  Report Type: 
  Country: None (occurrence: None)
  Receive Date: 20120227
  Receipt Date: 20110214
  Transmission Date: 20120608
  Serious: No
  Sender: FDA-Public Use
  Company Number: US-MYLANLABS-2011S1001472

PATIENT
  Age: 25 Year
  Sex: Female
  Weight: 63.5 kg

DRUGS (1)
  1. AMNESTEEM [Suspect]
     Indication: ACNE CYSTIC
     Route: 048
     Dates: start: 20101201, end: 20110114

REACTIONS (3)
  - SWELLING FACE [None]
  - BURNING SENSATION [None]
  - DRY SKIN [None]
